FAERS Safety Report 15976485 (Version 1)
Quarter: 2019Q1

REPORT INFORMATION
  Report Type: Report from Study
  Country: US (occurrence: US)
  Receive Date: 20190218
  Receipt Date: 20190218
  Transmission Date: 20190418
  Serious: Yes (Hospitalization, Other)
  Sender: FDA-Public Use
  Company Number: US-SA-2019SA044791

PATIENT
  Age: 39 Year

DRUGS (1)
  1. ALEMTUZUMAB [Suspect]
     Active Substance: ALEMTUZUMAB
     Dosage: 12 UNK
     Route: 041

REACTIONS (2)
  - Immune thrombocytopenic purpura [Unknown]
  - Gingival bleeding [Unknown]

NARRATIVE: CASE EVENT DATE: 2019
